FAERS Safety Report 20514144 (Version 4)
Quarter: 2025Q1

REPORT INFORMATION
  Report Type: Report from Study
  Country: US (occurrence: US)
  Receive Date: 20220224
  Receipt Date: 20250310
  Transmission Date: 20250409
  Serious: Yes (Other)
  Sender: AMNEAL
  Company Number: US-AMNEAL PHARMACEUTICALS-2021-AMRX-02150

PATIENT
  Sex: Female
  Weight: 56.24 kg

DRUGS (17)
  1. CARBIDOPA\LEVODOPA [Suspect]
     Active Substance: CARBIDOPA\LEVODOPA
     Indication: Parkinson^s disease
     Dosage: 07 CAPSULES, DAILY (2 CAPSULES AT 6AM, 3 CAPSULES AT 3PM, 2 CAPSULES AT 10PM)
     Route: 048
     Dates: start: 202105
  2. CARBIDOPA\LEVODOPA [Suspect]
     Active Substance: CARBIDOPA\LEVODOPA
     Dosage: 3 CAPSULES, 3X/DAY
     Route: 048
     Dates: start: 20210608
  3. CARBIDOPA\LEVODOPA [Suspect]
     Active Substance: CARBIDOPA\LEVODOPA
     Dosage: 9 CAPSULES, DAILY
     Route: 048
     Dates: start: 20211220
  4. CARBIDOPA\LEVODOPA [Suspect]
     Active Substance: CARBIDOPA\LEVODOPA
     Dosage: 3 CAPSULES, 3 /DAY
     Route: 048
  5. CARBIDOPA\LEVODOPA [Suspect]
     Active Substance: CARBIDOPA\LEVODOPA
     Route: 048
     Dates: start: 20221013
  6. CARBIDOPA\LEVODOPA [Suspect]
     Active Substance: CARBIDOPA\LEVODOPA
     Route: 048
  7. CARBIDOPA\LEVODOPA [Suspect]
     Active Substance: CARBIDOPA\LEVODOPA
     Route: 048
  8. LEVOTHYROXINE [Concomitant]
     Active Substance: LEVOTHYROXINE
     Indication: Product used for unknown indication
     Dosage: 25 MICROGRAM, DAILY
     Route: 065
  9. PROLIA [Concomitant]
     Active Substance: DENOSUMAB
     Indication: Osteoporosis
     Route: 065
     Dates: start: 20210122
  10. IMIQUIMOD [Concomitant]
     Active Substance: IMIQUIMOD
     Indication: Product used for unknown indication
     Route: 065
  11. CLOBETASOL [Concomitant]
     Active Substance: CLOBETASOL
     Indication: Skin disorder
     Route: 061
  12. CALCIUM\CHOLECALCIFEROL [Concomitant]
     Active Substance: CALCIUM\CHOLECALCIFEROL
     Indication: Product used for unknown indication
     Dosage: 60 MILLIGRAM, DAILY
     Route: 065
  13. LACTASE [Concomitant]
     Active Substance: LACTASE
     Indication: Product used for unknown indication
     Route: 065
  14. TYLENOL [Concomitant]
     Active Substance: ACETAMINOPHEN
     Indication: Product used for unknown indication
     Route: 065
  15. BENADRYL [Concomitant]
     Active Substance: DIPHENHYDRAMINE HYDROCHLORIDE
     Indication: Pruritus
     Route: 065
  16. VITAMIN D3 [Concomitant]
     Active Substance: CHOLECALCIFEROL
     Indication: Product used for unknown indication
     Dosage: 25 MICROGRAM, 5 /WEEK
     Route: 065
  17. SYSTANE (HYPROMELLOSE 2910 (4000 MPA.S)) [Concomitant]
     Active Substance: HYPROMELLOSE 2910 (4000 MPA.S)
     Indication: Product used for unknown indication
     Route: 065

REACTIONS (13)
  - Leukaemia [Unknown]
  - Hypoglycaemia [Recovering/Resolving]
  - Nervousness [Unknown]
  - Malaise [Recovering/Resolving]
  - Tremor [Recovering/Resolving]
  - Fatigue [Recovering/Resolving]
  - Weight decreased [Unknown]
  - Dyskinesia [Recovering/Resolving]
  - Brain fog [Unknown]
  - Therapeutic response shortened [Unknown]
  - Drug effect less than expected [Unknown]
  - Expired product administered [Unknown]
  - Overdose [Unknown]

NARRATIVE: CASE EVENT DATE: 20210101
